FAERS Safety Report 6423783-8 (Version None)
Quarter: 2009Q4

REPORT INFORMATION
  Report Type: 
  Country: None (occurrence: None)
  Receive Date: 20091102
  Receipt Date: 20091026
  Transmission Date: 20100525
  Serious: Yes (Death)
  Sender: FDA-Public Use
  Company Number: US-GILEAD-2009-0025036

PATIENT
  Sex: Female

DRUGS (12)
  1. LETAIRIS [Suspect]
     Indication: PULMONARY ARTERIAL HYPERTENSION
     Route: 048
     Dates: start: 20080528, end: 20091006
  2. REVATIO [Concomitant]
  3. WARFARIN SODIUM [Concomitant]
  4. FUROSEMIDE [Concomitant]
  5. LISINOPRIL [Concomitant]
  6. DIGOXIN [Concomitant]
  7. ATENOLOL [Concomitant]
  8. AMITRIPTYLINE [Concomitant]
  9. LEVOTHYROXINE SODIUM [Concomitant]
  10. GLIPIZIDE [Concomitant]
  11. TRAMADOL HCL [Concomitant]
  12. METAMUCIL [Concomitant]

REACTIONS (1)
  - DEATH [None]
